FAERS Safety Report 5382884-6 (Version None)
Quarter: 2007Q3

REPORT INFORMATION
  Report Type: 
  Country: None (occurrence: None)
  Receive Date: 20070703
  Receipt Date: 20070703
  Transmission Date: 20080115
  Serious: No
  Sender: FDA-Public Use
  Company Number: None

PATIENT
  Age: 42 Year
  Sex: Female
  Weight: 47.1741 kg

DRUGS (2)
  1. EFFEXOR [Suspect]
     Indication: MENOPAUSAL SYMPTOMS
     Dosage: 1 DAILY
     Dates: start: 20070522, end: 20070619
  2. EFFEXOR [Suspect]
     Indication: MOOD SWINGS
     Dosage: 1 DAILY
     Dates: start: 20070522, end: 20070619

REACTIONS (7)
  - CRYING [None]
  - DIZZINESS [None]
  - DRUG DOSE OMISSION [None]
  - MARITAL PROBLEM [None]
  - PSYCHOTIC DISORDER [None]
  - SUICIDAL IDEATION [None]
  - THINKING ABNORMAL [None]
